FAERS Safety Report 9179566 (Version 2)
Quarter: 2013Q2

REPORT INFORMATION
  Report Type: Spontaneous
  Country: US (occurrence: US)
  Receive Date: 20130321
  Receipt Date: 20130606
  Transmission Date: 20140414
  Serious: Yes (Death)
  Sender: FDA-Public Use
  Company Number: US-GILEAD-2013-0072231

PATIENT
  Sex: Male

DRUGS (4)
  1. LETAIRIS [Suspect]
     Indication: PULMONARY HYPERTENSION
     Dosage: 10 MG, QD
     Route: 048
     Dates: start: 20120831, end: 201303
  2. LETAIRIS [Suspect]
     Indication: ATRIAL SEPTAL DEFECT
  3. LETAIRIS [Suspect]
     Indication: HYPOXIA
  4. LETAIRIS [Suspect]
     Indication: SLEEP APNOEA SYNDROME

REACTIONS (1)
  - Renal failure [Fatal]
